FAERS Safety Report 9159791 (Version 2)
Quarter: 2013Q1

REPORT INFORMATION
  Report Type: Spontaneous
  Country: US (occurrence: US)
  Receive Date: 20130313
  Receipt Date: 20130322
  Transmission Date: 20140127
  Serious: No
  Sender: FDA-Public Use
  Company Number: US-PFIZER INC-2013079972

PATIENT
  Age: 53 Year
  Sex: Female
  Weight: 58.96 kg

DRUGS (2)
  1. ADVIL ALLERGY SINUS [Suspect]
     Indication: HYPERSENSITIVITY
     Dosage: 200/30MG, ONCE
     Dates: start: 201302, end: 201302
  2. ADVIL ALLERGY SINUS [Suspect]
     Indication: SINUSITIS

REACTIONS (4)
  - Drug ineffective [Unknown]
  - Feeling abnormal [Recovered/Resolved]
  - Feeling jittery [Recovered/Resolved]
  - Depressed mood [Recovered/Resolved]
